FAERS Safety Report 6023215-8 (Version None)
Quarter: 2008Q4

REPORT INFORMATION
  Report Type: 
  Country: None (occurrence: None)
  Receive Date: 20081223
  Receipt Date: 20081211
  Transmission Date: 20090506
  Serious: Yes (Hospitalization)
  Sender: FDA-Public Use
  Company Number: 2008003238

PATIENT
  Age: 53 Year
  Sex: Male

DRUGS (1)
  1. TARCEVA [Suspect]
     Indication: NON-SMALL CELL LUNG CANCER STAGE IV
     Dosage: (150 MG, QD), ORAL
     Route: 048
     Dates: start: 20081101

REACTIONS (2)
  - GALLBLADDER PERFORATION [None]
  - PERITONITIS [None]
